FAERS Safety Report 4461671-7 (Version None)
Quarter: 2004Q3

REPORT INFORMATION
  Report Type: 
  Country: None (occurrence: None)
  Receive Date: 20040909
  Receipt Date: 20040826
  Transmission Date: 20050211
  Serious: Yes (Hospitalization)
  Sender: FDA-Public Use
  Company Number: 200409089

PATIENT
  Age: 1 Year
  Sex: Male
  Weight: 11 kg

DRUGS (8)
  1. HAEMATE HS (FACTOR VIII (ANTIHEMOPHILIC FACTOR) ) (ZLB BEHRING) [Suspect]
     Indication: FACTOR VIII DEFICIENCY
     Dosage: 500 IU DAILY IV
     Route: 042
     Dates: start: 20010812, end: 20010812
  2. HAEMATE HS (FACTOR VIII (ANTIHEMOPHILIC FACTOR) ) (ZLB BEHRING) [Suspect]
     Indication: FACTOR VIII DEFICIENCY
     Dosage: 500 IU DAILY IV
     Route: 042
     Dates: start: 20010903, end: 20010904
  3. BERIATE P [Suspect]
     Indication: FACTOR VIII DEFICIENCY
     Dosage: 500 IU DAILY IV
     Route: 042
     Dates: start: 20010917, end: 20010918
  4. BERIATE P [Suspect]
     Indication: FACTOR VIII DEFICIENCY
     Dosage: 500 IU DAILY IV
     Route: 042
     Dates: start: 20010930, end: 20010930
  5. BERIATE P [Suspect]
     Indication: FACTOR VIII DEFICIENCY
     Dosage: 500 IU DAILY IV
     Route: 042
     Dates: start: 20011012, end: 20011012
  6. BERIATE P [Suspect]
     Indication: FACTOR VIII DEFICIENCY
     Dosage: 500 IU DAILY IV
     Route: 042
     Dates: start: 20011016, end: 20011016
  7. BERIATE P [Suspect]
     Indication: FACTOR VIII DEFICIENCY
     Dosage: 500 IU DAILY IV
     Route: 042
     Dates: start: 20011108, end: 20011109
  8. ERYTHROZYTENKONZENTRAT (EK) [Concomitant]

REACTIONS (3)
  - ANTI FACTOR VIII ANTIBODY POSITIVE [None]
  - MOUTH HAEMORRHAGE [None]
  - MUSCLE HAEMORRHAGE [None]
